FAERS Safety Report 15245177 (Version 1)
Quarter: 2018Q3

REPORT INFORMATION
  Report Type: Spontaneous
  Country: US (occurrence: US)
  Receive Date: 20180713
  Receipt Date: 20180713
  Transmission Date: 20181010
  Serious: No
  Sender: FDA-Public Use
  Company Number: None

PATIENT
  Sex: Male

DRUGS (1)
  1. ENTECAVIR TAB [Suspect]
     Active Substance: ENTECAVIR
     Dates: start: 20180701, end: 20180713

REACTIONS (1)
  - Nausea [None]

NARRATIVE: CASE EVENT DATE: 20180713
